FAERS Safety Report 7033913-5 (Version None)
Quarter: 2010Q4

REPORT INFORMATION
  Report Type: 
  Country: None (occurrence: None)
  Receive Date: 20101005
  Receipt Date: 20100721
  Transmission Date: 20110411
  Serious: Yes (Hospitalization)
  Sender: FDA-Public Use
  Company Number: 00000276

PATIENT
  Age: 58 Year
  Sex: Female

DRUGS (5)
  1. ZOLPIDEM TARTRATE [Suspect]
     Indication: INSOMNIA
     Dosage: 1
     Dates: start: 20100706, end: 20100706
  2. ARIMIDEX [Concomitant]
  3. MIRAPAX [Concomitant]
  4. ARTANE [Concomitant]
  5. PROZAC [Concomitant]

REACTIONS (3)
  - AGGRESSION [None]
  - AMNESIA [None]
  - HALLUCINATIONS, MIXED [None]
